FAERS Safety Report 25045246 (Version 2)
Quarter: 2025Q1

REPORT INFORMATION
  Report Type: Report from Study
  Country: BR (occurrence: BR)
  Receive Date: 20250306
  Receipt Date: 20250327
  Transmission Date: 20250409
  Serious: Yes (Death, Other)
  Sender: DR REDDYS
  Company Number: BR-Dr. Reddys Brasil-BRA/2025/02/003115

PATIENT
  Age: 67 Year
  Sex: Male
  Weight: 98 kg

DRUGS (1)
  1. LENALIDOMIDE [Suspect]
     Active Substance: LENALIDOMIDE
     Indication: Non-Hodgkin^s lymphoma
     Route: 048

REACTIONS (1)
  - Death [Fatal]
